FAERS Safety Report 8773625 (Version 1)
Quarter: 2012Q4

REPORT INFORMATION
  Report Type: 
  Country: DE (occurrence: DE)
  Receive Date: 20120907
  Receipt Date: 20120907
  Transmission Date: 20130627
  Serious: Yes (Other)
  Sender: FDA-Public Use
  Company Number: DE-JNJFOC-20120902780

PATIENT
  Age: 77 Year
  Sex: Male
  Weight: 105 kg

DRUGS (21)
  1. XARELTO [Suspect]
     Indication: ARRHYTHMIA
     Route: 065
     Dates: start: 20120613, end: 20120702
  2. XARELTO [Suspect]
     Indication: ARRHYTHMIA
     Route: 065
     Dates: start: 20120703, end: 20120803
  3. XARELTO [Suspect]
     Indication: CEREBROVASCULAR ACCIDENT PROPHYLAXIS
     Route: 065
     Dates: start: 20120703, end: 20120803
  4. XARELTO [Suspect]
     Indication: CEREBROVASCULAR ACCIDENT PROPHYLAXIS
     Route: 065
     Dates: start: 20120613, end: 20120702
  5. XARELTO [Suspect]
     Indication: ATRIAL FIBRILLATION
     Route: 065
     Dates: start: 20120613, end: 20120702
  6. XARELTO [Suspect]
     Indication: ATRIAL FIBRILLATION
     Route: 065
     Dates: start: 20120703, end: 20120803
  7. IBUPROFEN [Concomitant]
  8. SIMVASTATIN [Concomitant]
     Dates: start: 20120803
  9. SPIRONOLACTONE [Concomitant]
  10. TORASEMID [Concomitant]
  11. RANEXA [Concomitant]
     Dates: start: 20120707
  12. TRUSOPT [Concomitant]
  13. PANTOPRAZOLE [Concomitant]
  14. ACTRAPHANE [Concomitant]
  15. ACTRAPHANE [Concomitant]
  16. METAMIZOL [Concomitant]
  17. TRAMADOL [Concomitant]
  18. VALSARTAN [Concomitant]
  19. ALLOPURINOL [Concomitant]
  20. FERRO SANOL [Concomitant]
  21. METOPROLOL SUCCINATE [Concomitant]

REACTIONS (6)
  - Wound haemorrhage [Recovering/Resolving]
  - Bleeding time prolonged [Recovering/Resolving]
  - Renal failure [Recovering/Resolving]
  - Haemorrhagic diathesis [Recovering/Resolving]
  - Anaemia [Recovering/Resolving]
  - Haemoglobin decreased [Recovering/Resolving]
